FAERS Safety Report 7553668-5 (Version None)
Quarter: 2011Q2

REPORT INFORMATION
  Report Type: 
  Country: None (occurrence: None)
  Receive Date: 20110617
  Receipt Date: 20110608
  Transmission Date: 20111010
  Serious: Yes (Other)
  Sender: FDA-Public Use
  Company Number: DE-JNJFOC-20110411119

PATIENT
  Age: 40 Year
  Sex: Female

DRUGS (4)
  1. LEVOFLOXACIN [Suspect]
     Indication: NASOPHARYNGITIS
     Dosage: TREATMENT DURATION: 5.5 DAYS
     Route: 048
     Dates: start: 20110412, end: 20110418
  2. LEVOFLOXACIN [Suspect]
     Indication: URINARY TRACT INFECTION
     Dosage: TREATMENT DURATION: 5.5 DAYS
     Route: 048
     Dates: start: 20110412, end: 20110418
  3. LEVOFLOXACIN [Suspect]
     Indication: NEPHRITIS
     Dosage: TREATMENT DURATION: 5.5 DAYS
     Route: 048
     Dates: start: 20110412, end: 20110418
  4. LEVOFLOXACIN [Suspect]
     Indication: BRONCHITIS
     Dosage: TREATMENT DURATION: 5.5 DAYS
     Route: 048
     Dates: start: 20110412, end: 20110418

REACTIONS (5)
  - FEELING ABNORMAL [None]
  - HALLUCINATION [None]
  - ACUTE PSYCHOSIS [None]
  - SUICIDAL IDEATION [None]
  - ANXIETY [None]
